FAERS Safety Report 20297282 (Version 1)
Quarter: 2022Q1

REPORT INFORMATION
  Report Type: Spontaneous
  Country: US (occurrence: None)
  Receive Date: 20220105
  Receipt Date: 20220105
  Transmission Date: 20220423
  Serious: No
  Sender: FDA-Public Use
  Company Number: US-ROCHE-2857305

PATIENT
  Age: 8 Year
  Sex: Male
  Weight: 50.848 kg

DRUGS (5)
  1. HEMLIBRA [Suspect]
     Active Substance: EMICIZUMAB-KXWH
     Indication: Factor VIII deficiency
     Dosage: 1 ML
     Route: 058
     Dates: start: 20210524
  2. PEDIALYTE [Suspect]
     Active Substance: POTASSIUM CITRATE\SODIUM CITRATE\ZINC
     Indication: Product used for unknown indication
     Route: 065
     Dates: start: 20210609
  3. BENADRYL [Concomitant]
     Active Substance: DIPHENHYDRAMINE HYDROCHLORIDE
     Indication: Urticaria
     Route: 048
  4. BENADRYL [Concomitant]
     Active Substance: DIPHENHYDRAMINE HYDROCHLORIDE
     Route: 048
  5. AMICAR [Concomitant]
     Active Substance: AMINOCAPROIC ACID
     Indication: Mouth haemorrhage
     Route: 048

REACTIONS (4)
  - Urticaria [Not Recovered/Not Resolved]
  - Wrong technique in product usage process [Unknown]
  - Mouth haemorrhage [Recovered/Resolved]
  - Pain [Recovered/Resolved]

NARRATIVE: CASE EVENT DATE: 20210524
